FAERS Safety Report 8115856-9 (Version None)
Quarter: 2012Q1

REPORT INFORMATION
  Report Type: 
  Country: None (occurrence: None)
  Receive Date: 20120206
  Receipt Date: 20120201
  Transmission Date: 20120608
  Serious: Yes (Other)
  Sender: FDA-Public Use
  Company Number: IN-ROCHE-1032660

PATIENT
  Sex: Male
  Weight: 69 kg

DRUGS (2)
  1. MIRCERA [Suspect]
     Indication: NEPHROGENIC ANAEMIA
     Route: 058
  2. TELMISARTAN [Concomitant]

REACTIONS (1)
  - CELLULITIS [None]
